FAERS Safety Report 4724253-5 (Version None)
Quarter: 2005Q3

REPORT INFORMATION
  Report Type: 
  Country: None (occurrence: None)
  Receive Date: 20050721
  Receipt Date: 20050714
  Transmission Date: 20060218
  Serious: Yes (Other)
  Sender: FDA-Public Use
  Company Number: HQWYE820329JUN05

PATIENT
  Sex: 0

DRUGS (1)
  1. GEMTUZUMAB OZOGAMICIN (GEMTUZUMAB OZOGAMICIN, INJECTION) [Suspect]
     Indication: ACUTE MYELOID LEUKAEMIA
     Dosage: 6 MG/M^2 1X PER 1 DAY   21 DAYS BEFORE ALLOGENEIC TRANSPLANTATION

REACTIONS (2)
  - APLASIA [None]
  - STEM CELL TRANSPLANT [None]
